FAERS Safety Report 8248767 (Version 2)
Quarter: 2022Q1

REPORT INFORMATION
  Report Type: Report from Study
  Country: AR (occurrence: AR)
  Receive Date: 20111117
  Receipt Date: 20220322
  Transmission Date: 20220423
  Serious: Yes (Hospitalization, Other)
  Sender: FDA-Public Use
  Company Number: PHHY2011AR098760

PATIENT
  Sex: Female

DRUGS (3)
  1. EXFORGE [Suspect]
     Active Substance: AMLODIPINE BESYLATE\VALSARTAN
     Indication: Blood pressure increased
     Dosage: 1 DOSAGE FORM, QD
     Route: 048
     Dates: start: 2009
  2. EXFORGE [Suspect]
     Active Substance: AMLODIPINE BESYLATE\VALSARTAN
     Indication: Blood pressure measurement
     Dosage: 1.5 DOSAGE FORM, QD (28 TABLET) (STARTED SINCE MORE THAN 10 YEARS AGO)
     Route: 065
  3. VILDAGLIPTIN [Suspect]
     Active Substance: VILDAGLIPTIN
     Indication: Product used for unknown indication
     Dosage: 50 X 56 TABLETS
     Route: 065

REACTIONS (4)
  - Meningioma [Unknown]
  - Diabetes mellitus [Unknown]
  - Maculopathy [Unknown]
  - Wrong technique in product usage process [Unknown]

NARRATIVE: CASE EVENT DATE: 20100101
